FAERS Safety Report 17227657 (Version 3)
Quarter: 2020Q2

REPORT INFORMATION
  Report Type: Spontaneous
  Country: DE (occurrence: DE)
  Receive Date: 20200103
  Receipt Date: 20200417
  Transmission Date: 20200713
  Serious: Yes (Other)
  Sender: FDA-Public Use
  Company Number: DE-AUROBINDO-AUR-APL-2019-108118

PATIENT
  Age: 67 Year
  Sex: Female

DRUGS (2)
  1. ETORICOXIB FILM COATED TABLET [Suspect]
     Active Substance: ETORICOXIB
     Indication: PAIN
     Dosage: 90 MILLIGRAM, ONCE A DAY (30 D/M)
     Route: 048
  2. IBUPROFEN. [Suspect]
     Active Substance: IBUPROFEN
     Indication: PAIN
     Dosage: 1200 MILLIGRAM, ONCE A DAY,(30 D/M)
     Route: 065

REACTIONS (3)
  - Intentional product misuse [Recovered/Resolved]
  - Back pain [Recovered/Resolved]
  - Drug ineffective [Recovering/Resolving]
